FAERS Safety Report 19320305 (Version 3)
Quarter: 2021Q3

REPORT INFORMATION
  Report Type: Report from Study
  Country: NO (occurrence: NO)
  Receive Date: 20210527
  Receipt Date: 20210928
  Transmission Date: 20211014
  Serious: Yes (Hospitalization, Other)
  Sender: FDA-Public Use
  Company Number: NO-TAKEDA-NO201914125

PATIENT
  Age: 73 Year
  Sex: Female
  Weight: 56 kg

DRUGS (23)
  1. TEDUGLUTIDE [Suspect]
     Active Substance: TEDUGLUTIDE
     Indication: SHORT-BOWEL SYNDROME
     Dosage: 2.4 MILLIGRAM, TED DAILY DOSE MG KG: 0.05, TED DOSES PER WEEK: 7
     Route: 065
     Dates: start: 20180530, end: 20191114
  2. REMERON [Concomitant]
     Active Substance: MIRTAZAPINE
     Indication: EPILEPSY
  3. OXYCONTIN [Concomitant]
     Active Substance: OXYCODONE HYDROCHLORIDE
     Indication: PRODUCT USED FOR UNKNOWN INDICATION
  4. BEHEPAN [CYANOCOBALAMIN] [Concomitant]
     Active Substance: CYANOCOBALAMIN
     Dosage: 2 MILLIGRAM, QD
     Route: 048
     Dates: start: 20210510
  5. ARANESP [Concomitant]
     Active Substance: DARBEPOETIN ALFA
     Indication: RENAL IMPAIRMENT
  6. L?THYROXINE [Concomitant]
     Active Substance: LEVOTHYROXINE
     Indication: HYPOTHYROIDISM
  7. PHOSPHATE [PHOSPHORIC ACID SODIUM] [Concomitant]
     Active Substance: SODIUM PHOSPHATE
     Indication: SHORT-BOWEL SYNDROME
     Dosage: 500 MILLIGRAM, BID
     Route: 048
     Dates: start: 20210406
  8. CORTISONE [Concomitant]
     Active Substance: CORTISONE
     Indication: PRODUCT USED FOR UNKNOWN INDICATION
  9. NYCOPLUS B?TOTAL [Concomitant]
     Indication: PRODUCT USED FOR UNKNOWN INDICATION
  10. BEHEPAN [CYANOCOBALAMIN] [Concomitant]
     Active Substance: CYANOCOBALAMIN
     Indication: SHORT-BOWEL SYNDROME
     Dosage: 2 MILLIGRAM, QD
     Route: 048
     Dates: start: 20210310
  11. ORFIRIL [Concomitant]
     Active Substance: VALPROATE SODIUM
     Indication: EPILEPSY
     Dosage: 600 MILLIGRAM, BID
     Route: 048
     Dates: start: 20200330
  12. VAGIFEM [Concomitant]
     Active Substance: ESTRADIOL
     Indication: PRODUCT USED FOR UNKNOWN INDICATION
  13. KAJOS [Concomitant]
     Active Substance: POTASSIUM CITRATE
     Indication: SHORT-BOWEL SYNDROME
     Dosage: 30 MILLIGRAM, BID
     Route: 048
     Dates: start: 20210406
  14. TEDUGLUTIDE [Suspect]
     Active Substance: TEDUGLUTIDE
     Indication: SHORT-BOWEL SYNDROME
     Dosage: 2.4 MILLIGRAM, TED DAILY DOSE MG KG: 0.05, TED DOSES PER WEEK: 7
     Route: 065
     Dates: start: 20180530, end: 20191114
  15. BUCCOLAM [Concomitant]
     Active Substance: MIDAZOLAM HYDROCHLORIDE
     Indication: PRODUCT USED FOR UNKNOWN INDICATION
  16. FENTANYL TRANSDERMAL SYSTEM [Concomitant]
     Active Substance: FENTANYL
     Indication: PRODUCT USED FOR UNKNOWN INDICATION
  17. NEXIUM [Concomitant]
     Active Substance: ESOMEPRAZOLE MAGNESIUM
     Indication: PRODUCT USED FOR UNKNOWN INDICATION
  18. SOBRIL [Concomitant]
     Active Substance: OXAZEPAM
     Indication: PRODUCT USED FOR UNKNOWN INDICATION
  19. TEDUGLUTIDE [Suspect]
     Active Substance: TEDUGLUTIDE
     Indication: SHORT-BOWEL SYNDROME
     Dosage: 2.4 MILLIGRAM, TED DAILY DOSE MG KG: 0.05, TED DOSES PER WEEK: 7
     Route: 065
     Dates: start: 20180530, end: 20191114
  20. TEDUGLUTIDE [Suspect]
     Active Substance: TEDUGLUTIDE
     Indication: SHORT-BOWEL SYNDROME
     Dosage: 2.4 MILLIGRAM, TED DAILY DOSE MG KG: 0.05, TED DOSES PER WEEK: 7
     Route: 065
     Dates: start: 20180530, end: 20191114
  21. FEMAR [Concomitant]
     Active Substance: LETROZOLE
     Indication: BREAST CANCER
  22. LAMICTAL [Concomitant]
     Active Substance: LAMOTRIGINE
     Indication: PRODUCT USED FOR UNKNOWN INDICATION
  23. LIOTHYRONINE [Concomitant]
     Active Substance: LIOTHYRONINE
     Indication: PRODUCT USED FOR UNKNOWN INDICATION

REACTIONS (3)
  - Epilepsy [Recovered/Resolved]
  - Urinary tract infection [Recovered/Resolved]
  - Sepsis [Recovered/Resolved]

NARRATIVE: CASE EVENT DATE: 20190405
